FAERS Safety Report 5976466-2 (Version None)
Quarter: 2008Q4

REPORT INFORMATION
  Report Type: 
  Country: None (occurrence: None)
  Receive Date: 20081126
  Receipt Date: 20081113
  Transmission Date: 20090506
  Serious: Yes (Hospitalization, Other)
  Sender: FDA-Public Use
  Company Number: 237052J08USA

PATIENT
  Age: 67 Year
  Sex: Female
  Weight: 68 kg

DRUGS (19)
  1. REBIF [Suspect]
     Indication: MULTIPLE SCLEROSIS
     Dosage: 44 MCG 3 IN 1 WEEKS, SUBCUTANEOUS; 22 MCG, 3 IN 1 WEEKS SUBCUTANEOUS
     Route: 058
     Dates: start: 20070125, end: 20080401
  2. REBIF [Suspect]
     Indication: MULTIPLE SCLEROSIS
     Dosage: 44 MCG 3 IN 1 WEEKS, SUBCUTANEOUS; 22 MCG, 3 IN 1 WEEKS SUBCUTANEOUS
     Route: 058
     Dates: start: 20080409
  3. LEVAQUIN [Concomitant]
  4. TRIMPEX [Concomitant]
  5. AMOXICILLIN [Concomitant]
  6. IMODIUM [Concomitant]
  7. LEVOXYL [Concomitant]
  8. NEXIUM [Concomitant]
  9. BACLOFEN [Concomitant]
  10. PLAVIX [Concomitant]
  11. QUESTRAN [Concomitant]
  12. CYMBALTA [Concomitant]
  13. KLONOPIN [Concomitant]
  14. COZAAR [Concomitant]
  15. REQUIP [Concomitant]
  16. RESTORIL [Concomitant]
  17. BONIVA [Concomitant]
  18. FLORISTAT (ALL OTHER THERAPEUTIC PRODUCTS) [Concomitant]
  19. IRON (IRON) [Concomitant]

REACTIONS (8)
  - ANAEMIA [None]
  - ASTHENIA [None]
  - BRONCHITIS [None]
  - CLOSTRIDIUM DIFFICILE COLITIS [None]
  - COLITIS ISCHAEMIC [None]
  - HAEMORRHOIDAL HAEMORRHAGE [None]
  - MUSCULAR WEAKNESS [None]
  - RECTAL HAEMORRHAGE [None]
